FAERS Safety Report 5889932-5 (Version None)
Quarter: 2008Q3

REPORT INFORMATION
  Report Type: 
  Country: None (occurrence: None)
  Receive Date: 20080919
  Receipt Date: 20080918
  Transmission Date: 20090109
  Serious: Yes (Death, Other)
  Sender: FDA-Public Use
  Company Number: PHHY2008EG21777

PATIENT

DRUGS (3)
  1. ACLASTA [Suspect]
     Indication: OSTEOPOROSIS
     Dosage: ONCE YEARLY
     Route: 042
  2. CALCIUM GLUCONATE [Suspect]
  3. VITAMIN D [Suspect]

REACTIONS (4)
  - CONVULSION [None]
  - DEATH [None]
  - HYPOAESTHESIA [None]
  - TREMOR [None]
